FAERS Safety Report 10682853 (Version 2)
Quarter: 2015Q1

REPORT INFORMATION
  Report Type: Other
  Country: DK (occurrence: DK)
  Receive Date: 20141230
  Receipt Date: 20150202
  Transmission Date: 20150720
  Serious: Yes (Other)
  Sender: FDA-Public Use
  Company Number: DK-MYLANLABS-2014M1014949

PATIENT

DRUGS (1)
  1. OLANZAPINE. [Suspect]
     Active Substance: OLANZAPINE
     Indication: SCHIZOPHRENIA
     Dosage: 5 MG, QD
     Dates: start: 200703

REACTIONS (8)
  - Fatigue [Unknown]
  - Restlessness [Unknown]
  - Exposure during pregnancy [Unknown]
  - Disturbance in attention [Unknown]
  - Tremor [Recovering/Resolving]
  - Product substitution issue [Unknown]
  - Muscle spasms [Unknown]
  - Dyskinesia [Unknown]

NARRATIVE: CASE EVENT DATE: 2009
